FAERS Safety Report 8175696-1 (Version None)
Quarter: 2012Q1

REPORT INFORMATION
  Report Type: 
  Country: None (occurrence: None)
  Receive Date: 20120301
  Receipt Date: 20120222
  Transmission Date: 20120608
  Serious: No
  Sender: FDA-Public Use
  Company Number: US-BIOGENIDEC-2012BI006982

PATIENT
  Age: 48 Year
  Sex: Female

DRUGS (2)
  1. AVONEX [Suspect]
     Indication: MULTIPLE SCLEROSIS
     Route: 030
     Dates: start: 20070126, end: 20070505
  2. AVONEX [Suspect]
     Route: 030
     Dates: start: 20101009

REACTIONS (3)
  - MUSCULAR WEAKNESS [None]
  - FATIGUE [None]
  - VISION BLURRED [None]
